FAERS Safety Report 5048606-3 (Version None)
Quarter: 2006Q3

REPORT INFORMATION
  Report Type: 
  Country: None (occurrence: None)
  Receive Date: 20060712
  Receipt Date: 20060703
  Transmission Date: 20061208
  Serious: Yes (Death, Other)
  Sender: FDA-Public Use
  Company Number: GB-JNJFOC-20060400069

PATIENT
  Sex: Female
  Weight: 84 kg

DRUGS (11)
  1. REMICADE [Suspect]
     Indication: RHEUMATOID ARTHRITIS
     Route: 042
  2. METHOTREXATE [Concomitant]
     Route: 065
  3. PREDNISOLONE [Concomitant]
     Route: 065
  4. ATORVASTATIN CALCIUM [Concomitant]
     Route: 065
  5. FOLIC ACID [Concomitant]
     Route: 065
  6. HYPROMELLOSE [Concomitant]
     Route: 065
  7. INDOCID [Concomitant]
     Route: 065
  8. KAPAKE [Concomitant]
     Route: 065
  9. LIVIAL [Concomitant]
     Route: 065
  10. METFORMIN [Concomitant]
     Route: 065
  11. OMEPRAZOLE [Concomitant]
     Route: 065

REACTIONS (3)
  - ALVEOLITIS FIBROSING [None]
  - CARDIAC FAILURE CONGESTIVE [None]
  - CONFUSIONAL STATE [None]
